FAERS Safety Report 9960877 (Version 1)
Quarter: 2014Q1

REPORT INFORMATION
  Report Type: Spontaneous
  Country: GB (occurrence: None)
  Receive Date: 20140228
  Receipt Date: 20140228
  Transmission Date: 20141002
  Serious: Yes (Other)
  Sender: FDA-Public Use
  Company Number: GB-006717

PATIENT
  Age: 6 Year
  Sex: Male

DRUGS (1)
  1. 6-THIOGUANINE [Suspect]
     Indication: ACUTE LYMPHOCYTIC LEUKAEMIA

REACTIONS (4)
  - Hepatotoxicity [None]
  - Hepatosplenomegaly [None]
  - Telangiectasia [None]
  - Clubbing [None]
